FAERS Safety Report 5529272-7 (Version None)
Quarter: 2007Q4

REPORT INFORMATION
  Report Type: 
  Country: None (occurrence: None)
  Receive Date: 20071129
  Receipt Date: 20070926
  Transmission Date: 20080405
  Serious: No
  Sender: FDA-Public Use
  Company Number: A0684358A

PATIENT
  Age: 45 Year
  Sex: Female

DRUGS (4)
  1. WELLBUTRIN SR [Suspect]
     Indication: DEPRESSION
     Dosage: 100MG PER DAY
     Route: 048
     Dates: start: 20070907
  2. METOPROLOL SUCCINATE EXTENDED RELEASE [Concomitant]
  3. PRAVACHOL [Concomitant]
  4. SYNTHROID [Concomitant]

REACTIONS (2)
  - DRY MOUTH [None]
  - NAUSEA [None]
